FAERS Safety Report 19563707 (Version 1)
Quarter: 2021Q3

REPORT INFORMATION
  Report Type: Spontaneous
  Country: US (occurrence: US)
  Receive Date: 20210716
  Receipt Date: 20210716
  Transmission Date: 20211014
  Serious: Yes (Hospitalization)
  Sender: FDA-Public Use
  Company Number: US-MAYNE PHARMA-2021MYN000463

PATIENT
  Sex: Female

DRUGS (2)
  1. NORTRIPTYLINE HYDROCHLORIDE. [Suspect]
     Active Substance: NORTRIPTYLINE HYDROCHLORIDE
     Indication: MIGRAINE
     Dosage: UNK
     Route: 065
  2. NORTRIPTYLINE HYDROCHLORIDE. [Suspect]
     Active Substance: NORTRIPTYLINE HYDROCHLORIDE
     Indication: ANXIETY
     Dosage: 50 MG, QD
     Route: 048
     Dates: end: 20210706

REACTIONS (7)
  - Exercise electrocardiogram abnormal [Not Recovered/Not Resolved]
  - Heart rate irregular [Not Recovered/Not Resolved]
  - Off label use [Unknown]
  - Intraocular pressure increased [Not Recovered/Not Resolved]
  - Sensory loss [Not Recovered/Not Resolved]
  - Atrial enlargement [Not Recovered/Not Resolved]
  - Sinus tachycardia [Not Recovered/Not Resolved]
